FAERS Safety Report 6730866-1 (Version None)
Quarter: 2010Q2

REPORT INFORMATION
  Report Type: 
  Country: None (occurrence: None)
  Receive Date: 20100518
  Receipt Date: 20100505
  Transmission Date: 20101027
  Serious: Yes (Hospitalization)
  Sender: FDA-Public Use
  Company Number: PHHY2010US28901

PATIENT
  Sex: Female

DRUGS (1)
  1. EXJADE [Suspect]
     Indication: PANCYTOPENIA
     Dosage: 250 MG, QD
     Route: 048
     Dates: start: 20081126, end: 20100224

REACTIONS (1)
  - CONDITION AGGRAVATED [None]
